FAERS Safety Report 7934128-6 (Version None)
Quarter: 2011Q4

REPORT INFORMATION
  Report Type: 
  Country: None (occurrence: None)
  Receive Date: 20111116
  Receipt Date: 20111102
  Transmission Date: 20120403
  Serious: Yes (Hospitalization)
  Sender: FDA-Public Use
  Company Number: DSA_48110_2011

PATIENT
  Age: 71 Year
  Sex: Male

DRUGS (1)
  1. ENALAPRIL MALEATE [Suspect]
     Indication: HYPERTENSION
     Dosage: 20 MG QD, ORAL
     Route: 048
     Dates: start: 20020101

REACTIONS (3)
  - ASPARTATE AMINOTRANSFERASE INCREASED [None]
  - CAUDA EQUINA SYNDROME [None]
  - ALANINE AMINOTRANSFERASE INCREASED [None]
